FAERS Safety Report 18771693 (Version 1)
Quarter: 2021Q1

REPORT INFORMATION
  Report Type: Spontaneous
  Country: US (occurrence: US)
  Receive Date: 20210121
  Receipt Date: 20210121
  Transmission Date: 20210419
  Serious: No
  Sender: FDA-Public Use
  Company Number: US-PERRIGO-20US012816

PATIENT
  Age: 74 Year
  Sex: Female
  Weight: 62.59 kg

DRUGS (3)
  1. BETAMETHASONE DIPROPIONATE. [Suspect]
     Active Substance: BETAMETHASONE DIPROPIONATE
     Dosage: SMALL AMOUNT, BID
     Route: 061
     Dates: start: 20200902, end: 20200902
  2. BETAMETHASONE DIPROPIONATE. [Suspect]
     Active Substance: BETAMETHASONE DIPROPIONATE
     Indication: ECZEMA
     Dosage: SMALL AMOUNT, SINGLE
     Route: 061
     Dates: start: 20200901, end: 20200901
  3. BETAMETHASONE DIPROPIONATE. [Suspect]
     Active Substance: BETAMETHASONE DIPROPIONATE
     Dosage: SMALL AMOUNT, SINGLE
     Route: 061
     Dates: start: 20200903, end: 20200903

REACTIONS (1)
  - Expired product administered [Recovered/Resolved]

NARRATIVE: CASE EVENT DATE: 20200901
